FAERS Safety Report 5055444-4 (Version None)
Quarter: 2006Q3

REPORT INFORMATION
  Report Type: 
  Country: None (occurrence: None)
  Receive Date: 20060719
  Receipt Date: 20060713
  Transmission Date: 20061208
  Serious: Yes (Hospitalization)
  Sender: FDA-Public Use
  Company Number: TH-GILEAD-2006-0009860

PATIENT
  Sex: Female

DRUGS (2)
  1. TRUVADA [Suspect]
     Indication: HIV INFECTION
     Route: 048
     Dates: start: 20060502, end: 20060626
  2. LOPINAVIR/RITONAVIR [Suspect]
     Indication: HIV INFECTION
     Route: 048
     Dates: start: 20060502, end: 20060626

REACTIONS (4)
  - FACE OEDEMA [None]
  - MYALGIA [None]
  - OEDEMA [None]
  - OEDEMA PERIPHERAL [None]
